FAERS Safety Report 5126052-1 (Version None)
Quarter: 2006Q4

REPORT INFORMATION
  Report Type: 
  Country: None (occurrence: None)
  Receive Date: 20061010
  Receipt Date: 20061010
  Transmission Date: 20070319
  Serious: Yes (Other)
  Sender: FDA-Public Use
  Company Number: None

PATIENT
  Age: 21 Year
  Sex: Female
  Weight: 58.9676 kg

DRUGS (1)
  1. DEMULEN 1/50-28 [Suspect]
     Indication: CONTRACEPTION
     Dosage: 50     1 PILL A DAY   PO
     Route: 048
     Dates: start: 20040608, end: 20040612

REACTIONS (6)
  - FATIGUE [None]
  - FLUID RETENTION [None]
  - HEADACHE [None]
  - LOSS OF LIBIDO [None]
  - PAIN IN EXTREMITY [None]
  - TELANGIECTASIA [None]
